FAERS Safety Report 8540790-X (Version None)
Quarter: 2012Q3

REPORT INFORMATION
  Report Type: 
  Country: None (occurrence: None)
  Receive Date: 20120726
  Receipt Date: 20120713
  Transmission Date: 20120928
  Serious: Yes (Hospitalization)
  Sender: FDA-Public Use
  Company Number: AU-INCYTE CORPORATION-2012IN001252

PATIENT
  Sex: Male
  Weight: 75.5 kg

DRUGS (5)
  1. FOLIC ACID [Concomitant]
  2. ACETAMINOPHEN [Concomitant]
     Dosage: 1 G, PRN
  3. INCB018424 (RUXOLITINIB) [Suspect]
  4. ALLOPURINOL [Concomitant]
  5. INDOMETHACIN [Concomitant]

REACTIONS (2)
  - CARDIOMYOPATHY [None]
  - DISEASE PROGRESSION [None]
